FAERS Safety Report 14983484 (Version 2)
Quarter: 2018Q3

REPORT INFORMATION
  Report Type: Spontaneous
  Country: JP (occurrence: JP)
  Receive Date: 20180607
  Receipt Date: 20180917
  Transmission Date: 20181010
  Serious: Yes (Hospitalization)
  Sender: FDA-Public Use
  Company Number: JP-ACTELION-A-CH2018-173402

PATIENT
  Age: 81 Year
  Sex: Female

DRUGS (11)
  1. TRACLEER [Suspect]
     Active Substance: BOSENTAN
     Dosage: 62.5 MG, QD
     Route: 048
     Dates: start: 20180601
  2. ALPROSTADIL. [Concomitant]
     Active Substance: ALPROSTADIL
  3. TAKECAB [Concomitant]
     Active Substance: VONOPRAZAN FUMURATE
  4. CARVEDILOL. [Concomitant]
     Active Substance: CARVEDILOL
  5. BAYASPIRIN [Concomitant]
     Active Substance: ASPIRIN
  6. ATORVASTATIN [Concomitant]
     Active Substance: ATORVASTATIN
  7. LUPRAC [Concomitant]
     Active Substance: TORSEMIDE
  8. TRACLEER [Suspect]
     Active Substance: BOSENTAN
     Indication: SCLERODERMA ASSOCIATED DIGITAL ULCER
     Dosage: 62.5 MG, BID
     Route: 048
     Dates: start: 20180416, end: 20180518
  9. DIART [Concomitant]
     Active Substance: AZOSEMIDE
  10. THYRADIN [Concomitant]
     Active Substance: LEVOTHYROXINE
  11. PREDONINE [Concomitant]
     Active Substance: PREDNISOLONE

REACTIONS (1)
  - Hepatitis B [Recovering/Resolving]

NARRATIVE: CASE EVENT DATE: 201805
